FAERS Safety Report 10929738 (Version 2)
Quarter: 2015Q2

REPORT INFORMATION
  Report Type: Spontaneous
  Country: FR (occurrence: FR)
  Receive Date: 20150319
  Receipt Date: 20150421
  Transmission Date: 20150821
  Serious: Yes (Congenital Anomaly, Other)
  Sender: FDA-Public Use
  Company Number: FR-SA-2015SA032438

PATIENT
  Sex: Female

DRUGS (1)
  1. PLAVIX [Suspect]
     Active Substance: CLOPIDOGREL BISULFATE
     Indication: MATERNAL EXPOSURE TIMING UNSPECIFIED
     Route: 064

REACTIONS (4)
  - Abortion induced [Unknown]
  - Foetal exposure during pregnancy [Unknown]
  - Cardiomyopathy [Recovered/Resolved]
  - Ultrasound antenatal screen [Recovered/Resolved]

NARRATIVE: CASE EVENT DATE: 20150203
